FAERS Safety Report 7439498-3 (Version None)
Quarter: 2011Q2

REPORT INFORMATION
  Report Type: 
  Country: None (occurrence: None)
  Receive Date: 20110427
  Receipt Date: 20110418
  Transmission Date: 20111010
  Serious: Yes (Hospitalization)
  Sender: FDA-Public Use
  Company Number: DE-ASTRAZENECA-2011SE22670

PATIENT
  Sex: Female

DRUGS (4)
  1. LEVOTHYROXINE SODIUM [Concomitant]
     Indication: AUTOIMMUNE THYROIDITIS
  2. SEROQUEL [Suspect]
     Indication: BIPOLAR DISORDER
     Route: 048
  3. LAMOTRIGINE [Concomitant]
     Route: 048
  4. SEROQUEL [Suspect]
     Dosage: 200 MG IN THE MORNING AND 400 MG IN THE EVENING
     Route: 048

REACTIONS (3)
  - PARKINSONISM [None]
  - SPEECH DISORDER [None]
  - DRY MOUTH [None]
